FAERS Safety Report 12922206 (Version 2)
Quarter: 2016Q4

REPORT INFORMATION
  Report Type: Spontaneous
  Country: US (occurrence: US)
  Receive Date: 20161108
  Receipt Date: 20161220
  Transmission Date: 20170207
  Serious: Yes (Hospitalization)
  Sender: FDA-Public Use
  Company Number: US-NORTHSTAR HEALTHCARE HOLDINGS-US-2016NSR001872

PATIENT
  Sex: Female

DRUGS (6)
  1. TIMOLOL. [Suspect]
     Active Substance: TIMOLOL
     Indication: VISUAL IMPAIRMENT
     Dosage: 0.68 MG/KG/DAY (THREE DROPS TOTAL), BID
  2. PROPRANOLOL HYDROCHLORIDE. [Suspect]
     Active Substance: PROPRANOLOL HYDROCHLORIDE
     Indication: INFANTILE HAEMANGIOMA
     Dosage: INCREASING DOSAGES OVER 2 DAYS
     Route: 048
  3. PROPRANOLOL HYDROCHLORIDE. [Suspect]
     Active Substance: PROPRANOLOL HYDROCHLORIDE
     Indication: VISUAL IMPAIRMENT
     Dosage: 2 MG/KG/DAY DIVIDED INTO TWO DOSES (FULL DOSE)
     Route: 048
  4. PROPRANOLOL HYDROCHLORIDE. [Suspect]
     Active Substance: PROPRANOLOL HYDROCHLORIDE
     Dosage: 1 MG/KG/DAY
     Route: 048
  5. TIMOLOL. [Suspect]
     Active Substance: TIMOLOL
     Indication: INFANTILE HAEMANGIOMA
     Dosage: 0.52 MG/KG/DAY, BID (ONE DROP ON EYELID)
     Route: 061
  6. TIMOLOL. [Suspect]
     Active Substance: TIMOLOL
     Indication: EYELID PTOSIS
     Dosage: 0.52 MG/KG/DAY, BID (ONE DROP INTRAOCULARLY)
     Route: 031

REACTIONS (3)
  - Hypothermia [Recovered/Resolved]
  - Lethargy [Recovered/Resolved]
  - Bradycardia [Recovered/Resolved]
